FAERS Safety Report 4289503-0 (Version None)
Quarter: 2004Q1

REPORT INFORMATION
  Report Type: 
  Country: None (occurrence: None)
  Receive Date: 20040113
  Receipt Date: 20021120
  Transmission Date: 20041129
  Serious: Yes (Other)
  Sender: FDA-Public Use
  Company Number: 2002068207

PATIENT
  Sex: Female

DRUGS (9)
  1. DIFLUCAN [Suspect]
     Indication: VAGINAL MYCOSIS
     Dosage: 150 MG (QD), ORAL
     Route: 048
  2. UNSPECIFIED ANTIBIOTICS [Suspect]
     Indication: INFECTION
     Dates: start: 20020101
  3. CLIMARA [Suspect]
     Indication: HORMONE REPLACEMENT THERAPY
     Dosage: TOPICAL
     Route: 061
     Dates: end: 20020101
  4. OESTRANORM (ESTRADIOL, NORETHISTERONE) [Suspect]
     Indication: HORMONE REPLACEMENT THERAPY
     Dosage: ORAL
     Route: 048
     Dates: end: 20020101
  5. METOPROLOL TARTRATE [Suspect]
     Indication: HYPERTENSION
     Dates: end: 20020101
  6. LEVOTHYROXINE SODIUM [Concomitant]
  7. DYAZIDE [Concomitant]
  8. ACETYLSALICYLIC ACID SRT [Concomitant]
  9. LORAZEPAM [Concomitant]

REACTIONS (8)
  - ABDOMINAL DISTENSION [None]
  - ALOPECIA [None]
  - FUNGAL INFECTION [None]
  - HYPERTENSION [None]
  - INFECTION [None]
  - INSOMNIA [None]
  - ROAD TRAFFIC ACCIDENT [None]
  - TOOTH INFECTION [None]
